FAERS Safety Report 5902715-2 (Version None)
Quarter: 2008Q3

REPORT INFORMATION
  Report Type: 
  Country: None (occurrence: None)
  Receive Date: 20080929
  Receipt Date: 20080929
  Transmission Date: 20090109
  Serious: Yes (Death)
  Sender: FDA-Public Use
  Company Number: None

PATIENT
  Age: 81 Year
  Sex: Male
  Weight: 66.2252 kg

DRUGS (1)
  1. BOTOX [Suspect]
     Indication: PARKINSONISM
     Dosage: QUARTERLY, EVERY 3 MONTHS LAST INJECTION 4/16/08
     Dates: end: 20080416

REACTIONS (6)
  - DRUG EFFECT DECREASED [None]
  - DYSPHAGIA [None]
  - GAIT DISTURBANCE [None]
  - PNEUMONIA [None]
  - RESPIRATORY DISORDER [None]
  - SPEECH DISORDER [None]
